FAERS Safety Report 5512117-9 (Version None)
Quarter: 2007Q4

REPORT INFORMATION
  Report Type: 
  Country: None (occurrence: None)
  Receive Date: 20071109
  Receipt Date: 20071030
  Transmission Date: 20080405
  Serious: Yes (Other)
  Sender: FDA-Public Use
  Company Number: GB-PFIZER INC-2007093437

PATIENT
  Age: 32 Year
  Sex: Male

DRUGS (1)
  1. CHAMPIX [Suspect]
     Indication: SMOKING CESSATION THERAPY
     Route: 048
     Dates: start: 20070822, end: 20071002

REACTIONS (4)
  - DEPRESSED MOOD [None]
  - DEPRESSION [None]
  - NEGATIVE THOUGHTS [None]
  - TEARFULNESS [None]
